FAERS Safety Report 14941398 (Version 1)
Quarter: 2018Q2

REPORT INFORMATION
  Report Type: Spontaneous
  Country: IT (occurrence: IT)
  Receive Date: 20180526
  Receipt Date: 20180526
  Transmission Date: 20180711
  Serious: Yes (Other)
  Sender: FDA-Public Use
  Company Number: IT-TEVA-2018-IT-896029

PATIENT
  Age: 55 Year
  Sex: Male

DRUGS (8)
  1. LANTUS [Concomitant]
     Active Substance: INSULIN GLARGINE
  2. RABEPRAZOLE SODIUM. [Concomitant]
     Active Substance: RABEPRAZOLE SODIUM
  3. QUETIAPINE. [Concomitant]
     Active Substance: QUETIAPINE
  4. AMOXICILLIN. [Suspect]
     Active Substance: AMOXICILLIN
     Route: 065
  5. DESCOVY [Suspect]
     Active Substance: EMTRICITABINE\TENOFOVIR ALAFENAMIDE FUMARATE
     Indication: HIV INFECTION
     Dosage: 200MG/10MG
     Route: 048
  6. INSULIN [Concomitant]
     Active Substance: INSULIN NOS
  7. SERTRALINE [Concomitant]
     Active Substance: SERTRALINE HYDROCHLORIDE
  8. DEPAKIN [Concomitant]
     Active Substance: VALPROATE SODIUM

REACTIONS (2)
  - Humerus fracture [Recovering/Resolving]
  - Renal failure [Recovering/Resolving]

NARRATIVE: CASE EVENT DATE: 20170120
